FAERS Safety Report 16879737 (Version 1)
Quarter: 2019Q4

REPORT INFORMATION
  Report Type: Spontaneous
  Country: US (occurrence: US)
  Receive Date: 20191003
  Receipt Date: 20191003
  Transmission Date: 20200122
  Serious: Yes (Hospitalization, Other)
  Sender: FDA-Public Use
  Company Number: US-PFIZER INC-2019421626

PATIENT
  Age: 40 Year
  Sex: Female

DRUGS (1)
  1. ADRIAMYCIN [Suspect]
     Active Substance: DOXORUBICIN HYDROCHLORIDE
     Dosage: UNK

REACTIONS (11)
  - Bacterial diarrhoea [Unknown]
  - Ligament sprain [Unknown]
  - Fall [Unknown]
  - Visual impairment [Unknown]
  - Full blood count decreased [Unknown]
  - Neurological examination abnormal [Unknown]
  - Pain [Unknown]
  - Vulvovaginal dryness [Unknown]
  - Febrile neutropenia [Unknown]
  - Migraine [Unknown]
  - Neoplasm progression [Unknown]
